FAERS Safety Report 15487538 (Version 2)
Quarter: 2018Q4

REPORT INFORMATION
  Report Type: Report from Study
  Country: DK (occurrence: DK)
  Receive Date: 20181011
  Receipt Date: 20181017
  Transmission Date: 20190205
  Serious: Yes (Other)
  Sender: FDA-Public Use
  Company Number: DK-PFIZER INC-2018407469

PATIENT
  Age: 51 Year
  Sex: Female

DRUGS (4)
  1. PERAMPANEL [Interacting]
     Active Substance: PERAMPANEL
     Indication: PARTIAL SEIZURES
     Dosage: INITIAL DOSE OF 2 MG ONCE DAILY AT BEDTIME
  2. PERAMPANEL [Interacting]
     Active Substance: PERAMPANEL
     Dosage: 4 MG, DAILY
  3. ZONISAMIDE. [Concomitant]
     Active Substance: ZONISAMIDE
     Indication: PARTIAL SEIZURES
     Dosage: UNK
     Route: 065
  4. LEVETIRACETAM. [Suspect]
     Active Substance: LEVETIRACETAM
     Indication: PARTIAL SEIZURES
     Dosage: UNK

REACTIONS (6)
  - Mood altered [Recovering/Resolving]
  - Fatigue [Recovering/Resolving]
  - Disturbance in attention [Recovering/Resolving]
  - Drug tolerance decreased [Recovering/Resolving]
  - Aggression [Recovering/Resolving]
  - Drug interaction [Recovering/Resolving]
